FAERS Safety Report 7486750-1 (Version None)
Quarter: 2011Q2

REPORT INFORMATION
  Report Type: 
  Country: None (occurrence: None)
  Receive Date: 20110517
  Receipt Date: 20100917
  Transmission Date: 20111010
  Serious: No
  Sender: FDA-Public Use
  Company Number: US-NOVEN-ALL1-2010-04942

PATIENT
  Sex: Male
  Weight: 72.562 kg

DRUGS (8)
  1. STRATTERA [Concomitant]
     Dosage: 40 MG, 1X/DAY:QD
     Route: 048
     Dates: start: 20100801, end: 20100901
  2. DAYTRANA [Suspect]
     Dosage: 20 MG, 1X/DAY:QD
     Route: 062
     Dates: start: 20100913
  3. TRAMADOL HCL [Concomitant]
     Dosage: 100 MG, FOUR TIMES DAILY AS REQ'D
     Route: 048
  4. STRATTERA [Concomitant]
     Dosage: 80 MG, 1X/DAY:QD
     Route: 048
     Dates: start: 20100901
  5. WELLBUTRIN [Concomitant]
     Dosage: 200 MG, 1X/DAY:QD
     Route: 048
     Dates: start: 20100817
  6. STRATTERA [Concomitant]
     Dosage: 20 MG, 1X/DAY:QD
     Route: 048
     Dates: start: 20100701, end: 20100801
  7. WELLBUTRIN [Concomitant]
  8. NEURONTIN [Concomitant]
     Dosage: 400 MG, 1X/DAY:QD
     Route: 048

REACTIONS (3)
  - PRODUCT QUALITY ISSUE [None]
  - OFF LABEL USE [None]
  - SOMNOLENCE [None]
